FAERS Safety Report 8449788-3 (Version None)
Quarter: 2012Q2

REPORT INFORMATION
  Report Type: 
  Country: None (occurrence: None)
  Receive Date: 20120620
  Receipt Date: 20120614
  Transmission Date: 20120825
  Serious: Yes (Other)
  Sender: FDA-Public Use
  Company Number: DE-BAYER-2012-024167

PATIENT
  Age: 65 Year
  Sex: Female
  Weight: 58 kg

DRUGS (1)
  1. BETASERON [Suspect]
     Route: 058

REACTIONS (4)
  - CHEST PAIN [None]
  - ANGINA PECTORIS [None]
  - TACHYCARDIA [None]
  - PALPITATIONS [None]
